FAERS Safety Report 4852341-1 (Version None)
Quarter: 2005Q4

REPORT INFORMATION
  Report Type: 
  Country: None (occurrence: None)
  Receive Date: 20051123
  Receipt Date: 20050316
  Transmission Date: 20060501
  Serious: Yes (Other)
  Sender: FDA-Public Use
  Company Number: US-JNJFOC-20050304414

PATIENT
  Sex: Female

DRUGS (1)
  1. LEVAQUIN [Suspect]
     Indication: COLITIS
     Dosage: INTRAVENOUS
     Route: 042

REACTIONS (4)
  - ARTHRITIS [None]
  - EYE PAIN [None]
  - FATIGUE [None]
  - NEUROPATHY PERIPHERAL [None]
